FAERS Safety Report 7553000-7 (Version None)
Quarter: 2011Q2

REPORT INFORMATION
  Report Type: 
  Country: None (occurrence: None)
  Receive Date: 20110616
  Receipt Date: 20110614
  Transmission Date: 20111010
  Serious: Yes (Other)
  Sender: FDA-Public Use
  Company Number: US-ALLERGAN-1102366US

PATIENT
  Age: 43 Year
  Sex: Female
  Weight: 60.771 kg

DRUGS (1)
  1. BOTOX COSMETIC [Suspect]
     Indication: SKIN WRINKLING
     Dosage: UNK
     Route: 030
     Dates: start: 20110105, end: 20110105

REACTIONS (6)
  - HEADACHE [None]
  - CHEST PAIN [None]
  - BACK PAIN [None]
  - NAUSEA [None]
  - FACIAL PARESIS [None]
  - SYNCOPE [None]
